FAERS Safety Report 5367101-5 (Version None)
Quarter: 2007Q2

REPORT INFORMATION
  Report Type: 
  Country: None (occurrence: None)
  Receive Date: 20070620
  Receipt Date: 20070620
  Transmission Date: 20071010
  Serious: Yes (Hospitalization)
  Sender: FDA-Public Use
  Company Number: None

PATIENT
  Age: 61 Year
  Sex: Male

DRUGS (2)
  1. MORPHINE [Suspect]
     Indication: PAIN
     Dosage: 60MG TID PO
     Route: 048
     Dates: start: 20061229, end: 20070504
  2. OXYCODONE HCL [Suspect]
     Dosage: 5MG TID PO
     Route: 048

REACTIONS (4)
  - ACCIDENTAL OVERDOSE [None]
  - CONFUSIONAL STATE [None]
  - DEPRESSED LEVEL OF CONSCIOUSNESS [None]
  - SEDATION [None]
